FAERS Safety Report 22203652 (Version 1)
Quarter: 2023Q2

REPORT INFORMATION
  Report Type: Report from Study
  Country: US (occurrence: US)
  Receive Date: 20230412
  Receipt Date: 20230412
  Transmission Date: 20230721
  Serious: Yes (Hospitalization, Other)
  Sender: FDA-Public Use
  Company Number: US-002147023-NVSC2023US080290

PATIENT
  Sex: Female

DRUGS (1)
  1. ENTRESTO [Suspect]
     Active Substance: SACUBITRIL\VALSARTAN
     Indication: Product used for unknown indication
     Dosage: UNK
     Route: 065

REACTIONS (10)
  - Myocardial infarction [Unknown]
  - Weight increased [Unknown]
  - Fluid retention [Unknown]
  - Illness [Unknown]
  - Initial insomnia [Unknown]
  - Nervousness [Unknown]
  - Joint swelling [Unknown]
  - Cardiac disorder [Unknown]
  - Stress [Unknown]
  - Hypotension [Unknown]
